FAERS Safety Report 13201211 (Version 1)
Quarter: 2017Q1

REPORT INFORMATION
  Report Type: Spontaneous
  Country: US (occurrence: US)
  Receive Date: 20170208
  Receipt Date: 20170208
  Transmission Date: 20170428
  Serious: No
  Sender: FDA-Public Use
  Company Number: US-AMGEN-USASP2016065676

PATIENT

DRUGS (2)
  1. TAXOTERE [Concomitant]
     Active Substance: DOCETAXEL
     Dosage: UNK
  2. NEULASTA [Suspect]
     Active Substance: PEGFILGRASTIM
     Indication: PRODUCT USED FOR UNKNOWN INDICATION
     Dosage: UNK
     Route: 065

REACTIONS (17)
  - Mucosal inflammation [Not Recovered/Not Resolved]
  - Salivary gland disorder [Unknown]
  - Nasal discomfort [Unknown]
  - Pain [Unknown]
  - Oral disorder [Unknown]
  - Pruritus [Unknown]
  - Bone pain [Unknown]
  - Dysphagia [Unknown]
  - Dysphonia [Unknown]
  - Throat irritation [Unknown]
  - Helplessness [Unknown]
  - Tongue disorder [Unknown]
  - Oesophageal pain [Unknown]
  - Feeling abnormal [Unknown]
  - Ear discomfort [Unknown]
  - Oral discomfort [Unknown]
  - Frustration tolerance decreased [Unknown]
